FAERS Safety Report 7944057-X (Version None)
Quarter: 2011Q4

REPORT INFORMATION
  Report Type: 
  Country: None (occurrence: None)
  Receive Date: 20111128
  Receipt Date: 20111118
  Transmission Date: 20120403
  Serious: Yes (Other)
  Sender: FDA-Public Use
  Company Number: US-ASTRAZENECA-2011SE70861

PATIENT
  Sex: Female

DRUGS (4)
  1. PULMICORT FLEXHALER [Suspect]
     Route: 055
  2. RHINOCORT [Suspect]
     Route: 045
  3. ACCOLATE [Suspect]
     Route: 048
  4. SEROQUEL [Suspect]
     Route: 048

REACTIONS (8)
  - TYPE 2 DIABETES MELLITUS [None]
  - EMPHYSEMA [None]
  - UTERINE LEIOMYOMA [None]
  - WEIGHT INCREASED [None]
  - DYSARTHRIA [None]
  - DRUG INEFFECTIVE [None]
  - BRONCHITIS [None]
  - SOMNOLENCE [None]
